FAERS Safety Report 17602292 (Version 1)
Quarter: 2020Q1

REPORT INFORMATION
  Report Type: Spontaneous
  Country: HR (occurrence: HR)
  Receive Date: 20200331
  Receipt Date: 20200331
  Transmission Date: 20200409
  Serious: Yes (Life-Threatening)
  Sender: FDA-Public Use
  Company Number: HR-BIOGEN-2020BI00855358

PATIENT
  Age: 20 Year
  Sex: Female
  Weight: 72 kg

DRUGS (1)
  1. PLEGRIDY [Suspect]
     Active Substance: PEGINTERFERON BETA-1A
     Indication: RELAPSING-REMITTING MULTIPLE SCLEROSIS
     Dosage: 250 MICROGRAMS PER 1 MONTH
     Route: 058
     Dates: start: 20190601, end: 20191215

REACTIONS (3)
  - Panic attack [Not Recovered/Not Resolved]
  - Asocial behaviour [Not Recovered/Not Resolved]
  - Depression [Not Recovered/Not Resolved]

NARRATIVE: CASE EVENT DATE: 20191010
